FAERS Safety Report 14030686 (Version 2)
Quarter: 2017Q4

REPORT INFORMATION
  Report Type: Spontaneous
  Country: US (occurrence: US)
  Receive Date: 20171002
  Receipt Date: 20171003
  Transmission Date: 20180321
  Serious: No
  Sender: FDA-Public Use
  Company Number: US-ASTRAZENECA-2017SE99734

PATIENT
  Age: 58 Year
  Sex: Male

DRUGS (2)
  1. RHINOCORT ALLERGY [Suspect]
     Active Substance: BUDESONIDE
     Indication: SINUSITIS
     Dosage: EVERY DAY
     Route: 055
  2. RHINOCORT ALLERGY [Suspect]
     Active Substance: BUDESONIDE
     Indication: PUPILLARY DISORDER
     Dosage: EVERY DAY
     Route: 055

REACTIONS (4)
  - Expired product administered [Unknown]
  - Drug dispensing error [Unknown]
  - Product use in unapproved indication [Unknown]
  - Therapeutic response unexpected [Unknown]
